FAERS Safety Report 26169487 (Version 1)
Quarter: 2025Q4

REPORT INFORMATION
  Report Type: Spontaneous
  Country: CN (occurrence: CN)
  Receive Date: 20251217
  Receipt Date: 20251217
  Transmission Date: 20260117
  Serious: Yes (Hospitalization, Other)
  Sender: PFIZER
  Company Number: CN-PFIZER INC-PV202500145740

PATIENT
  Age: 45 Year
  Sex: Male
  Weight: 55 kg

DRUGS (10)
  1. LINEZOLID [Suspect]
     Active Substance: LINEZOLID
     Indication: Pulmonary tuberculosis
     Dosage: 0.6G QD
     Dates: start: 2025
  2. LINEZOLID [Suspect]
     Active Substance: LINEZOLID
     Dosage: 0.600 G, 1X/DAY
     Route: 048
     Dates: start: 20251022, end: 20251207
  3. PROTIONAMIDE [Suspect]
     Active Substance: PROTIONAMIDE
     Indication: Pulmonary tuberculosis
     Dosage: 0.200 G, 3X/DAY
     Route: 048
     Dates: start: 20251022, end: 20251120
  4. LEVOFLOXACIN [Suspect]
     Active Substance: LEVOFLOXACIN
     Indication: Pulmonary tuberculosis
     Dosage: 0.5G QD
     Dates: start: 2025
  5. LEVOFLOXACIN [Suspect]
     Active Substance: LEVOFLOXACIN
     Dosage: 0.500 G, 1X/DAY
     Route: 048
     Dates: start: 20251022, end: 20251207
  6. CLOFAZIMINE [Suspect]
     Active Substance: CLOFAZIMINE
     Indication: Pulmonary tuberculosis
     Dosage: 100MG QD
     Dates: start: 2025
  7. CLOFAZIMINE [Suspect]
     Active Substance: CLOFAZIMINE
     Dosage: 100.000 MG
     Route: 048
     Dates: start: 20251022, end: 20251207
  8. ETHAMBUTOL HYDROCHLORIDE [Suspect]
     Active Substance: ETHAMBUTOL HYDROCHLORIDE
     Indication: Pulmonary tuberculosis
     Dosage: 0.750 G, 1X/DAY
     Route: 048
     Dates: start: 20251022, end: 20251207
  9. AMIKACIN SULFATE [Suspect]
     Active Substance: AMIKACIN SULFATE
     Indication: Pulmonary tuberculosis
     Dosage: UNK
     Dates: start: 2025
  10. AMIKACIN SULFATE [Suspect]
     Active Substance: AMIKACIN SULFATE
     Dosage: 0.400 G, 1X/DAY
     Route: 030
     Dates: start: 20251022, end: 20251207

REACTIONS (6)
  - Drug-induced liver injury [Recovering/Resolving]
  - Hepatic enzyme increased [Recovering/Resolving]
  - Pyrexia [Unknown]
  - Arthralgia [Unknown]
  - Pain [Unknown]
  - Off label use [Unknown]

NARRATIVE: CASE EVENT DATE: 20250101
